FAERS Safety Report 4382029-5 (Version None)
Quarter: 2004Q2

REPORT INFORMATION
  Report Type: 
  Country: None (occurrence: None)
  Receive Date: 20040615
  Receipt Date: 20040528
  Transmission Date: 20050107
  Serious: Yes (Death, Hospitalization, Other)
  Sender: FDA-Public Use
  Company Number: 2003UW06922

PATIENT
  Age: 31 Year
  Sex: Male
  Weight: 83.0083 kg

DRUGS (50)
  1. PROPOFOL [Suspect]
     Indication: SEDATION
     Dosage: 25 TO 60 ML/HR
     Dates: start: 20010518
  2. PROPOFOL [Suspect]
     Indication: SEDATION
     Dosage: 80 ML/HR (1000 MG/100 ML)
     Dates: start: 20010519, end: 20010521
  3. PROPOFOL [Suspect]
     Indication: SEDATION
     Dosage: 110 ML/HR
     Dates: start: 20010522
  4. PROPOFOL [Suspect]
     Indication: SEDATION
     Dosage: 40 ML/HR
  5. PROPOFOL [Suspect]
     Indication: SEDATION
  6. SUCCINYLCHOLINE [Suspect]
  7. WELLBUTRIN SR [Concomitant]
  8. ADALAT CC [Concomitant]
  9. PROCARDIA XL [Concomitant]
  10. ANCEF [Concomitant]
  11. COLACE [Concomitant]
  12. HEPARIN [Concomitant]
  13. LASIX [Concomitant]
  14. POTASSIUM CHLORIDE [Concomitant]
  15. ZOSYN [Concomitant]
  16. SODIUM CHLORIDE [Concomitant]
  17. MULTI-VITAMINS [Concomitant]
  18. REGLAN [Concomitant]
  19. SODIUM BICARBONATE [Concomitant]
  20. MORPHINE [Concomitant]
  21. TYLENOL [Concomitant]
  22. VERSED [Concomitant]
  23. LIDOCAINE [Concomitant]
  24. ADENOSINE [Concomitant]
  25. DULCOLAX [Concomitant]
  26. ATIVAN [Concomitant]
  27. TORADOL [Concomitant]
  28. DARVOCET [Concomitant]
  29. AMBIEN [Concomitant]
  30. DEMEROL [Concomitant]
  31. BUPIVACAINE HCL AND EPINEPHRINE [Concomitant]
  32. XANAX [Concomitant]
  33. BENADRYL [Concomitant]
  34. SENSORCAINE [Concomitant]
  35. ALBUTEROL [Concomitant]
  36. FENTANYL [Concomitant]
  37. LORCET-HD [Concomitant]
  38. MARCAINE HCL W/ EPINEPHRINE [Concomitant]
  39. BUPIVACAINE [Concomitant]
  40. DILAUDID [Concomitant]
  41. LEVAQUIN [Concomitant]
  42. MUCOMYST [Concomitant]
  43. MANNITOL [Concomitant]
  44. VANCOMYCIN [Concomitant]
  45. DOPAMINE HCL [Concomitant]
  46. EPINEPHRINE [Concomitant]
  47. ZEMURON [Concomitant]
  48. SEVOFLURANE [Concomitant]
  49. LEVOPHED [Concomitant]
  50. OSMOLITE [Concomitant]

REACTIONS (36)
  - ATHEROSCLEROSIS [None]
  - ATRIAL FIBRILLATION [None]
  - ATRIOVENTRICULAR BLOCK COMPLETE [None]
  - BLOOD CHOLESTEROL INCREASED [None]
  - BLOOD TRIGLYCERIDES INCREASED [None]
  - BRADYCARDIA [None]
  - BUNDLE BRANCH BLOCK RIGHT [None]
  - CARDIAC ARREST [None]
  - CARDIOGENIC SHOCK [None]
  - CORONARY ARTERY OCCLUSION [None]
  - DIFFUSE ALVEOLAR DAMAGE [None]
  - ELECTROCARDIOGRAM QT PROLONGED [None]
  - ELECTROCARDIOGRAM ST-T CHANGE [None]
  - ELECTROCARDIOGRAM T WAVE INVERSION [None]
  - GENERAL PHYSICAL HEALTH DETERIORATION [None]
  - HEPATIC STEATOSIS [None]
  - HEPATITIS [None]
  - HEPATOCELLULAR DAMAGE [None]
  - HEPATOMEGALY [None]
  - HYPERKALAEMIA [None]
  - HYPERLIPIDAEMIA [None]
  - HYPERTENSION [None]
  - HYPERTHERMIA MALIGNANT [None]
  - MEDICATION ERROR [None]
  - METABOLIC ACIDOSIS [None]
  - MUSCLE NECROSIS [None]
  - MYOCARDIAL FIBROSIS [None]
  - PNEUMONIA [None]
  - RENAL FAILURE ACUTE [None]
  - RHABDOMYOLYSIS [None]
  - SEPSIS [None]
  - TACHYCARDIA [None]
  - TORSADE DE POINTES [None]
  - VENTRICULAR FIBRILLATION [None]
  - VENTRICULAR HYPERTROPHY [None]
  - VENTRICULAR TACHYCARDIA [None]
